FAERS Safety Report 7355008-3 (Version None)
Quarter: 2011Q1

REPORT INFORMATION
  Report Type: 
  Country: None (occurrence: None)
  Receive Date: 20110316
  Receipt Date: 20110301
  Transmission Date: 20110831
  Serious: Yes (Hospitalization)
  Sender: FDA-Public Use
  Company Number: NL-SANOFI-AVENTIS-2011SA007053

PATIENT
  Age: 79 Year
  Sex: Female

DRUGS (3)
  1. THYROXIN [Concomitant]
     Indication: HYPOTHYROIDISM
     Route: 048
  2. MINIRIN [Suspect]
     Route: 048
  3. MOVICOLON [Concomitant]
     Route: 048

REACTIONS (4)
  - NAUSEA [None]
  - INAPPROPRIATE ANTIDIURETIC HORMONE SECRETION [None]
  - HYPONATRAEMIA [None]
  - ABDOMINAL PAIN UPPER [None]
